FAERS Safety Report 7100870-2 (Version None)
Quarter: 2010Q4

REPORT INFORMATION
  Report Type: 
  Country: None (occurrence: None)
  Receive Date: 20101113
  Receipt Date: 20100323
  Transmission Date: 20110411
  Serious: No
  Sender: FDA-Public Use
  Company Number: US-ALLERGAN-1003858US

PATIENT
  Age: 44 Year
  Sex: Female
  Weight: 61.224 kg

DRUGS (2)
  1. BOTOXA? [Suspect]
     Indication: SKIN WRINKLING
  2. MULTI-VITAMIN [Concomitant]

REACTIONS (1)
  - DRUG INEFFECTIVE [None]
